FAERS Safety Report 8957683 (Version 2)
Quarter: 2013Q1

REPORT INFORMATION
  Report Type: Spontaneous
  Country: US (occurrence: US)
  Receive Date: 20121210
  Receipt Date: 20130107
  Transmission Date: 20140127
  Serious: Yes (Other)
  Sender: FDA-Public Use
  Company Number: US-PFIZER INC-2012264901

PATIENT
  Age: 82 Year
  Sex: Female
  Weight: 70.3 kg

DRUGS (2)
  1. PREMARIN [Suspect]
     Indication: HORMONE REPLACEMENT THERAPY
     Dosage: 0.625 MG, DAILY
  2. BUTALBITAL/ASPIRIN/CAFFEINE [Concomitant]
     Indication: HEADACHE
     Dosage: UNK

REACTIONS (3)
  - Surgery [Unknown]
  - Benign neoplasm [Recovered/Resolved]
  - Haemangioma [Unknown]
